FAERS Safety Report 15651006 (Version 1)
Quarter: 2018Q4

REPORT INFORMATION
  Report Type: Spontaneous
  Country: SA (occurrence: SA)
  Receive Date: 20181123
  Receipt Date: 20181123
  Transmission Date: 20190205
  Serious: Yes (Other)
  Sender: FDA-Public Use
  Company Number: SA-009507513-1811SAU004916

PATIENT
  Age: 31 Year
  Sex: Male

DRUGS (5)
  1. IMIPENEM AND CILASTATIN [Suspect]
     Active Substance: CILASTATIN SODIUM\IMIPENEM
     Indication: PNEUMONIA
     Dosage: PROLONGED COURSES
  2. TIGECYCLINE. [Concomitant]
     Active Substance: TIGECYCLINE
     Indication: PNEUMONIA
  3. COLISTIN [Concomitant]
     Active Substance: COLISTIN
     Indication: PNEUMONIA
  4. PIPERACILLIN AND TAZOBACTAM [Concomitant]
     Active Substance: PIPERACILLIN SODIUM\TAZOBACTAM SODIUM
     Indication: POSTOPERATIVE WOUND INFECTION
     Dosage: AT ADMISSION, EMPIRIC THERAPY
  5. PIPERACILLIN AND TAZOBACTAM [Concomitant]
     Active Substance: PIPERACILLIN SODIUM\TAZOBACTAM SODIUM
     Indication: LOWER RESPIRATORY TRACT INFECTION
     Dosage: ON DAY 30, 4.5 GRAM, EVERY 6 HOURS
     Route: 042

REACTIONS (1)
  - Pathogen resistance [Unknown]
